FAERS Safety Report 5642238-1 (Version None)
Quarter: 2008Q1

REPORT INFORMATION
  Report Type: 
  Country: None (occurrence: None)
  Receive Date: 20080225
  Receipt Date: 20080219
  Transmission Date: 20080703
  Serious: Yes (Hospitalization)
  Sender: FDA-Public Use
  Company Number: A0710693A

PATIENT
  Age: 62 Year
  Sex: Female

DRUGS (2)
  1. SIMETHICONE (FORMULATION UNKNOWN) (SIMETHICONE) [Suspect]
     Indication: FLATULENCE
     Dosage: ORAL
     Route: 048
  2. OXYCODONE HYDROCHLORIDE [Suspect]
     Indication: DRUG USE FOR UNKNOWN INDICATION
     Dosage: ORAL
     Route: 048

REACTIONS (1)
  - HERNIA OBSTRUCTIVE [None]
